FAERS Safety Report 9519016 (Version 3)
Quarter: 2013Q4

REPORT INFORMATION
  Report Type: Spontaneous
  Country: US (occurrence: US)
  Receive Date: 20130912
  Receipt Date: 20131014
  Transmission Date: 20140711
  Serious: Yes (Hospitalization)
  Sender: FDA-Public Use
  Company Number: US-AMGEN-USASP2013064038

PATIENT
  Age: 16 Year
  Sex: Female
  Weight: 66 kg

DRUGS (9)
  1. ENBREL [Suspect]
     Indication: PRODUCT USED FOR UNKNOWN INDICATION
     Dosage: 50 MG, QWK
     Route: 058
     Dates: start: 20130605, end: 20130806
  2. KLONOPIN [Concomitant]
     Dosage: 0.5 MG, UNK
  3. METHOTREXATE [Concomitant]
     Indication: ARTHRITIS
     Dosage: 20 MG, QWK
     Route: 048
     Dates: start: 20130424
  4. METHOTREXATE [Concomitant]
     Indication: TENDONITIS
  5. TRAZODONE [Concomitant]
     Dosage: 50 MG, QD
     Route: 048
  6. WELLBUTRIN [Concomitant]
     Dosage: 75 MG, UNK
     Route: 048
  7. FOLIC ACID [Concomitant]
     Indication: TENDONITIS
     Dosage: 1 MG, QD
     Route: 048
     Dates: start: 20130424
  8. FOLIC ACID [Concomitant]
     Indication: ARTHRITIS
  9. CLONAZEPAM [Concomitant]
     Dosage: UNK UNK, QD
     Route: 048

REACTIONS (5)
  - Infection [Unknown]
  - Unevaluable event [Unknown]
  - Complement factor C3 decreased [Not Recovered/Not Resolved]
  - Complement factor C4 decreased [Not Recovered/Not Resolved]
  - Therapeutic response decreased [Unknown]
